FAERS Safety Report 7373743-8 (Version None)
Quarter: 2011Q1

REPORT INFORMATION
  Report Type: 
  Country: None (occurrence: None)
  Receive Date: 20110325
  Receipt Date: 20110315
  Transmission Date: 20110831
  Serious: Yes (Hospitalization, Other)
  Sender: FDA-Public Use
  Company Number: PL-JNJFOC-20110106069

PATIENT
  Sex: Male
  Weight: 78 kg

DRUGS (13)
  1. OMEPRAZOLE [Concomitant]
     Indication: GASTRITIS
     Route: 048
  2. METHYLPREDNISOLONE [Concomitant]
     Indication: RHEUMATOID ARTHRITIS
     Route: 048
  3. METOPROLOL TARTRATE [Concomitant]
     Indication: CARDIOVASCULAR EVENT PROPHYLAXIS
     Route: 048
  4. OMEPRAZOLE [Concomitant]
     Route: 048
  5. GOLIMUMAB [Suspect]
     Route: 042
  6. VITAMIN B6 [Concomitant]
     Indication: ANTIBIOTIC PROPHYLAXIS
     Route: 048
  7. NYDRAZID [Suspect]
     Indication: ANTIBIOTIC PROPHYLAXIS
     Route: 048
  8. GOLIMUMAB [Suspect]
     Route: 042
  9. METHOTREXATE [Suspect]
     Indication: RHEUMATOID ARTHRITIS
  10. MESALAMINE [Concomitant]
     Indication: COLITIS
     Route: 048
  11. GOLIMUMAB [Suspect]
     Indication: RHEUMATOID ARTHRITIS
     Route: 042
  12. FOLIC ACID [Concomitant]
     Indication: PROPHYLAXIS
     Route: 048
  13. DICLOFENAC [Concomitant]
     Indication: RHEUMATOID ARTHRITIS
     Route: 048

REACTIONS (1)
  - HEPATITIS TOXIC [None]
